FAERS Safety Report 5835476-6 (Version None)
Quarter: 2008Q3

REPORT INFORMATION
  Report Type: 
  Country: None (occurrence: None)
  Receive Date: 20080806
  Receipt Date: 20080730
  Transmission Date: 20090109
  Serious: Yes (Hospitalization)
  Sender: FDA-Public Use
  Company Number: FR-ASTRAZENECA-2008CG01155

PATIENT
  Age: 5188 Day
  Sex: Male
  Weight: 31 kg

DRUGS (5)
  1. NAROPEINE [Suspect]
     Indication: EPIDURAL ANAESTHESIA
     Route: 008
     Dates: start: 20080325, end: 20080327
  2. MOPRAL [Concomitant]
     Route: 042
     Dates: start: 20080325
  3. SUFENTA [Concomitant]
     Indication: EPIDURAL ANAESTHESIA
     Route: 008
     Dates: start: 20080325, end: 20080327
  4. ACETAMINOPHEN [Concomitant]
     Route: 042
     Dates: start: 20080325
  5. NALBUPHINE [Concomitant]
     Route: 042
     Dates: start: 20080325

REACTIONS (4)
  - BRADYCARDIA [None]
  - CONVULSION [None]
  - OXYGEN SATURATION DECREASED [None]
  - RASH [None]
